FAERS Safety Report 7410157-6 (Version None)
Quarter: 2011Q2

REPORT INFORMATION
  Report Type: 
  Country: None (occurrence: None)
  Receive Date: 20110412
  Receipt Date: 20110407
  Transmission Date: 20111010
  Serious: Yes (Other)
  Sender: FDA-Public Use
  Company Number: BR-PFIZER INC-2011077048

PATIENT
  Age: 57 Year
  Sex: Female
  Weight: 76 kg

DRUGS (2)
  1. LYRICA [Suspect]
     Indication: PAIN
     Dosage: 75 MG, UNK
     Route: 048
     Dates: start: 20110331, end: 20110331
  2. CALCIUM [Concomitant]
     Indication: OSTEOPENIA
     Dosage: UNK

REACTIONS (6)
  - VISION BLURRED [None]
  - DIZZINESS [None]
  - HYPERSOMNIA [None]
  - FEAR [None]
  - HEART RATE INCREASED [None]
  - INSOMNIA [None]
